FAERS Safety Report 9365861 (Version 1)
Quarter: 2013Q4

REPORT INFORMATION
  Report Type: Spontaneous
  Country: US (occurrence: None)
  Receive Date: 20130624
  Receipt Date: 20130624
  Transmission Date: 20140711
  Serious: Yes (Hospitalization)
  Sender: FDA-Public Use
  Company Number: None

PATIENT
  Age: 51 Year
  Sex: Female
  Weight: 56.25 kg

DRUGS (1)
  1. HABITROL [Suspect]
     Indication: SMOKING CESSATION THERAPY
     Dosage: DOSE PER QUITTINE  1 PATCH QD TRANSDERMAL

REACTIONS (10)
  - Asthenia [None]
  - Dizziness [None]
  - Pain in extremity [None]
  - Hyperhidrosis [None]
  - Pain in extremity [None]
  - Pain in jaw [None]
  - Cough [None]
  - Anxiety [None]
  - Respiratory distress [None]
  - Chronic obstructive pulmonary disease [None]
